FAERS Safety Report 16893666 (Version 1)
Quarter: 2019Q4

REPORT INFORMATION
  Report Type: Spontaneous
  Country: GB (occurrence: GB)
  Receive Date: 20191008
  Receipt Date: 20191008
  Transmission Date: 20200122
  Serious: Yes (Other)
  Sender: FDA-Public Use
  Company Number: GB-PFIZER INC-2019424903

PATIENT
  Sex: Female

DRUGS (9)
  1. METHOTREXATE SODIUM. [Suspect]
     Active Substance: METHOTREXATE SODIUM
     Indication: PSORIATIC ARTHROPATHY
     Dosage: UNK, WEEKLY
  2. ADALIMUMAB [Suspect]
     Active Substance: ADALIMUMAB
     Indication: PSORIATIC ARTHROPATHY
     Dosage: UNK, CYCLIC (EVERY 2 WEEKS)
  3. ADALIMUMAB [Suspect]
     Active Substance: ADALIMUMAB
     Indication: FIBROMYALGIA
     Dosage: UNK, 2X/WEEK
  4. METHOTREXATE SODIUM. [Suspect]
     Active Substance: METHOTREXATE SODIUM
     Indication: FIBROMYALGIA
     Dosage: UNK, WEEKLY, (QW)
  5. METHOTREXATE SODIUM. [Suspect]
     Active Substance: METHOTREXATE SODIUM
     Indication: OSTEOARTHRITIS
  6. SULFASALAZINE. [Suspect]
     Active Substance: SULFASALAZINE
     Indication: PSORIATIC ARTHROPATHY
     Dosage: 5 DF, DAILY
  7. SULFASALAZINE. [Suspect]
     Active Substance: SULFASALAZINE
     Indication: OSTEOARTHRITIS
     Dosage: 5 DF, 1X/DAY
  8. ADALIMUMAB [Suspect]
     Active Substance: ADALIMUMAB
     Indication: OSTEOARTHRITIS
  9. SULFASALAZINE. [Suspect]
     Active Substance: SULFASALAZINE
     Indication: FIBROMYALGIA

REACTIONS (4)
  - Renal failure [Unknown]
  - Pain [Unknown]
  - Malaise [Unknown]
  - Fatigue [Unknown]
